FAERS Safety Report 8907490 (Version 1)
Quarter: 2012Q4

REPORT INFORMATION
  Report Type: 
  Country: AU (occurrence: AU)
  Receive Date: 20121114
  Receipt Date: 20121114
  Transmission Date: 20130627
  Serious: Yes (Hospitalization, Other)
  Sender: FDA-Public Use
  Company Number: AU-PFIZER INC-2012282649

PATIENT

DRUGS (2)
  1. CORDARONE [Suspect]
     Dosage: UNK
     Route: 065
  2. PANTOPRAZOLE [Concomitant]
     Dosage: UNK

REACTIONS (1)
  - Pleuropericarditis [Unknown]
